FAERS Safety Report 23349762 (Version 7)
Quarter: 2024Q4

REPORT INFORMATION
  Report Type: Spontaneous
  Country: CA (occurrence: CA)
  Receive Date: 20231229
  Receipt Date: 20241220
  Transmission Date: 20250115
  Serious: Yes (Other)
  Sender: CELLTRION
  Company Number: CA-CELLTRION INC.-2023CA024243

PATIENT

DRUGS (12)
  1. INFLECTRA [Suspect]
     Active Substance: INFLIXIMAB-DYYB
     Indication: Crohn^s disease
     Dosage: 200 MG, INDUCTION WEEKS 0, 2, 6, MAINTENANCE EVERY 8 WEEKS
     Route: 042
     Dates: start: 20231129, end: 20231129
  2. INFLECTRA [Suspect]
     Active Substance: INFLIXIMAB-DYYB
     Dosage: 300 MG, ONE DOSE ASAP THEN 4 WEEKS LATER, AND THEN EVERY 8 WEEKS
     Route: 042
     Dates: start: 20231211
  3. INFLECTRA [Suspect]
     Active Substance: INFLIXIMAB-DYYB
     Dosage: 300 MG, AFTER 4 WEEKS AND 2 DAYS (PRESCRIBED AS AFTER 4 WEEKS OF WEEK 2 INDUCTION)
     Route: 042
     Dates: start: 20240110
  4. INFLECTRA [Suspect]
     Active Substance: INFLIXIMAB-DYYB
     Dosage: 300 MG, REINDUCTION THEN EVERY 4 WEEKS
     Route: 042
     Dates: start: 20240126
  5. INFLECTRA [Suspect]
     Active Substance: INFLIXIMAB-DYYB
     Dosage: 400 MG, WEEK 2 INDUCTION DOSE
     Route: 042
     Dates: start: 20240126
  6. INFLECTRA [Suspect]
     Active Substance: INFLIXIMAB-DYYB
     Dosage: 300 MG, REINDUCTION THEN EVERY 4 WEEKS
     Route: 042
     Dates: start: 20240812
  7. INFLECTRA [Suspect]
     Active Substance: INFLIXIMAB-DYYB
     Dosage: 300 MG, REINDUCTION THEN EVERY 4 WEEKS
     Route: 042
     Dates: start: 20240812
  8. INFLECTRA [Suspect]
     Active Substance: INFLIXIMAB-DYYB
     Dosage: 400 MG, EVERY 5 WEEKS
     Route: 042
     Dates: start: 20240916
  9. INFLECTRA [Suspect]
     Active Substance: INFLIXIMAB-DYYB
     Dosage: 400 MG, EVERY 5 WEEKS
     Route: 042
     Dates: start: 20241022
  10. CONCERTA [Concomitant]
     Active Substance: METHYLPHENIDATE HYDROCHLORIDE
     Dosage: UNK
  11. CORTEF [Concomitant]
     Active Substance: HYDROCORTISONE
     Dosage: 5 MG
  12. PREDNISONE [Concomitant]
     Active Substance: PREDNISONE
     Dosage: 20 MG

REACTIONS (5)
  - Condition aggravated [Not Recovered/Not Resolved]
  - Therapeutic response shortened [Not Recovered/Not Resolved]
  - Off label use [Unknown]
  - Off label use [Unknown]
  - Inappropriate schedule of product administration [Unknown]

NARRATIVE: CASE EVENT DATE: 20230101
